FAERS Safety Report 4796941-6 (Version None)
Quarter: 2005Q4

REPORT INFORMATION
  Report Type: 
  Country: None (occurrence: None)
  Receive Date: 20051011
  Receipt Date: 20051011
  Transmission Date: 20060501
  Serious: Yes (Other)
  Sender: FDA-Public Use
  Company Number: None

PATIENT
  Age: 37 Year
  Sex: Female

DRUGS (2)
  1. DILAUDID [Suspect]
     Indication: NECK PAIN
     Dosage: 1MG IM TIMES 1
     Route: 030
     Dates: start: 20050808, end: 20050808
  2. DILAUDID [Suspect]
     Indication: SHOULDER PAIN
     Dosage: 1MG IM TIMES 1
     Route: 030
     Dates: start: 20050808, end: 20050808

REACTIONS (1)
  - SINUS BRADYCARDIA [None]
